FAERS Safety Report 14460752 (Version 1)
Quarter: 2018Q1

REPORT INFORMATION
  Report Type: Spontaneous
  Country: US (occurrence: US)
  Receive Date: 20180130
  Receipt Date: 20180130
  Transmission Date: 20180509
  Serious: No
  Sender: FDA-Public Use
  Company Number: US-BAYER-2018-017633

PATIENT
  Age: 62 Year
  Sex: Male
  Weight: 86.17 kg

DRUGS (3)
  1. MIRALAX [Suspect]
     Active Substance: POLYETHYLENE GLYCOL 3350
     Indication: GASTROINTESTINAL DISORDER
     Dosage: 1 OR 2 CAPFULS PER DAY
     Route: 048
     Dates: start: 201702
  2. CHOLESTEROL [Concomitant]
     Active Substance: CHOLESTEROL
  3. ONE A DAY ESSENTIAL [VITAMINS NOS] [Concomitant]

REACTIONS (3)
  - Product use issue [None]
  - Product use issue [None]
  - Abdominal discomfort [Recovering/Resolving]

NARRATIVE: CASE EVENT DATE: 2017
